FAERS Safety Report 14681374 (Version 1)
Quarter: 2018Q1

REPORT INFORMATION
  Report Type: Spontaneous
  Country: US (occurrence: US)
  Receive Date: 20180326
  Receipt Date: 20180326
  Transmission Date: 20180509
  Serious: No
  Sender: FDA-Public Use
  Company Number: US-JNJFOC-20180307163

PATIENT
  Age: 46 Year
  Sex: Female
  Weight: 49.44 kg

DRUGS (5)
  1. ABILIFY [Concomitant]
     Active Substance: ARIPIPRAZOLE
     Indication: PRODUCT USED FOR UNKNOWN INDICATION
     Route: 065
  2. ZYRTEC [Suspect]
     Active Substance: CETIRIZINE HYDROCHLORIDE
     Indication: MULTIPLE ALLERGIES
     Route: 065
     Dates: start: 2018, end: 20180304
  3. FLUOXETINE [Concomitant]
     Active Substance: FLUOXETINE HYDROCHLORIDE
     Indication: PRODUCT USED FOR UNKNOWN INDICATION
     Route: 065
  4. ZYRTEC [Suspect]
     Active Substance: CETIRIZINE HYDROCHLORIDE
     Route: 065
  5. WELLBUTRIN [Concomitant]
     Active Substance: BUPROPION HYDROCHLORIDE
     Indication: PRODUCT USED FOR UNKNOWN INDICATION
     Route: 065

REACTIONS (8)
  - Skin tightness [Not Recovered/Not Resolved]
  - Joint effusion [Not Recovered/Not Resolved]
  - Dysphonia [Not Recovered/Not Resolved]
  - Discomfort [Not Recovered/Not Resolved]
  - Oedema [Not Recovered/Not Resolved]
  - Weight increased [Not Recovered/Not Resolved]
  - Hypokinesia [Not Recovered/Not Resolved]
  - Swelling [Not Recovered/Not Resolved]

NARRATIVE: CASE EVENT DATE: 2018
